FAERS Safety Report 20519460 (Version 1)
Quarter: 2022Q1

REPORT INFORMATION
  Report Type: Spontaneous
  Country: GB (occurrence: GB)
  Receive Date: 20220225
  Receipt Date: 20220225
  Transmission Date: 20220423
  Serious: Yes (Other)
  Sender: FDA-Public Use
  Company Number: GB-MHRA-MED-202202221440290400-5VQWK

PATIENT
  Age: 66 Year
  Sex: Female
  Weight: 125 kg

DRUGS (2)
  1. ATOVAQUONE [Suspect]
     Active Substance: ATOVAQUONE
     Indication: Product used for unknown indication
     Dosage: UNK, (250MG/100MG)
     Route: 065
     Dates: start: 20220207, end: 20220214
  2. PROGUANIL [Suspect]
     Active Substance: PROGUANIL
     Indication: Product used for unknown indication
     Dosage: UNK, (250MG/100MG)
     Route: 065
     Dates: start: 20220207, end: 20220214

REACTIONS (1)
  - Oedema peripheral [Recovered/Resolved]

NARRATIVE: CASE EVENT DATE: 20220209
